FAERS Safety Report 8167357-X (Version None)
Quarter: 2012Q1

REPORT INFORMATION
  Report Type: 
  Country: None (occurrence: None)
  Receive Date: 20120221
  Receipt Date: 20120206
  Transmission Date: 20120608
  Serious: Yes (Hospitalization)
  Sender: FDA-Public Use
  Company Number: 2012-00165

PATIENT
  Age: 8 Year
  Sex: Male

DRUGS (2)
  1. CEFTRIAXONE SODIUM [Suspect]
     Indication: TYPHOID FEVER
     Dosage: 1 GM (1 GM, 1 IN 1 D), INTRAVENOUS
     Route: 042
  2. OFLOXACIN (UNKNOWN) [Concomitant]

REACTIONS (6)
  - SOMNOLENCE [None]
  - MENTAL STATUS CHANGES [None]
  - APATHY [None]
  - DEHYDRATION [None]
  - MYOCLONUS [None]
  - TOXIC ENCEPHALOPATHY [None]
